FAERS Safety Report 9245388 (Version 1)
Quarter: 2013Q2

REPORT INFORMATION
  Report Type: Spontaneous
  Country: US (occurrence: US)
  Receive Date: 20130422
  Receipt Date: 20130422
  Transmission Date: 20140414
  Serious: No
  Sender: FDA-Public Use
  Company Number: US-PFIZER INC-2013125119

PATIENT
  Age: 69 Year
  Sex: Female
  Weight: 99.77 kg

DRUGS (2)
  1. ATORVASTATIN CALCIUM [Suspect]
     Indication: BLOOD CHOLESTEROL INCREASED
     Dosage: 20 MG, 1X/DAY
  2. ATORVASTATIN CALCIUM [Suspect]
     Indication: BLOOD CHOLESTEROL INCREASED
     Dosage: 20 MG, 1X/DAY
     Route: 048

REACTIONS (1)
  - Rash [Unknown]
